FAERS Safety Report 8009275-3 (Version None)
Quarter: 2011Q4

REPORT INFORMATION
  Report Type: 
  Country: None (occurrence: None)
  Receive Date: 20111227
  Receipt Date: 20111219
  Transmission Date: 20120403
  Serious: Yes (Other)
  Sender: FDA-Public Use
  Company Number: US-ASTRAZENECA-2010SE07188

PATIENT
  Age: 58 Year
  Sex: Female
  Weight: 67.1 kg

DRUGS (8)
  1. LITHIUM [Concomitant]
  2. SEROQUEL [Suspect]
     Indication: BIPOLAR DISORDER
     Dosage: 400 MG DAILY AND 800 MG AT NIGHT
     Route: 048
     Dates: start: 20040101
  3. SEROQUEL [Suspect]
     Route: 048
     Dates: start: 20100101
  4. CYMBALTA [Concomitant]
  5. SYNTHROID [Concomitant]
  6. PRILOSEC [Concomitant]
  7. PROPRANOLOL [Concomitant]
  8. ROZEREM [Concomitant]

REACTIONS (6)
  - INSOMNIA [None]
  - HALLUCINATION, VISUAL [None]
  - SUICIDAL IDEATION [None]
  - MANIA [None]
  - DRUG DOSE OMISSION [None]
  - ANXIETY [None]
